FAERS Safety Report 7598776-8 (Version None)
Quarter: 2011Q3

REPORT INFORMATION
  Report Type: 
  Country: None (occurrence: None)
  Receive Date: 20110711
  Receipt Date: 20110630
  Transmission Date: 20111222
  Serious: No
  Sender: FDA-Public Use
  Company Number: US-BIOGENIDEC-2011BI014412

PATIENT
  Sex: Female

DRUGS (2)
  1. TYSABRI [Suspect]
     Indication: MULTIPLE SCLEROSIS
     Route: 042
     Dates: start: 20070525, end: 20081024
  2. TYSABRI [Suspect]
     Route: 042
     Dates: start: 20110627

REACTIONS (9)
  - COGNITIVE DISORDER [None]
  - BALANCE DISORDER [None]
  - TREMOR [None]
  - NEUROPATHY PERIPHERAL [None]
  - MENTAL IMPAIRMENT [None]
  - GAIT DISTURBANCE [None]
  - FEELING ABNORMAL [None]
  - PAIN [None]
  - PAIN IN EXTREMITY [None]
